FAERS Safety Report 4559697-8 (Version None)
Quarter: 2005Q1

REPORT INFORMATION
  Report Type: 
  Country: None (occurrence: None)
  Receive Date: 20050107
  Receipt Date: 20040701
  Transmission Date: 20050727
  Serious: Yes (Other)
  Sender: FDA-Public Use
  Company Number: HQWYE881706JUL04

PATIENT
  Age: 60 Year
  Sex: Male

DRUGS (1)
  1. CORDARONE [Suspect]
     Dosage: ORAL
     Route: 048

REACTIONS (1)
  - VISUAL ACUITY REDUCED [None]
